FAERS Safety Report 8857181 (Version 1)
Quarter: 2012Q4

REPORT INFORMATION
  Report Type: 
  Country: BR (occurrence: BR)
  Receive Date: 20121024
  Receipt Date: 20121024
  Transmission Date: 20130627
  Serious: Yes (Other)
  Sender: FDA-Public Use
  Company Number: BR-AMGEN-BRASP2012066709

PATIENT
  Age: 24 Year
  Sex: Female
  Weight: 45 kg

DRUGS (4)
  1. ENBREL [Suspect]
     Indication: PSORIATIC ARTHROPATHY
     Dosage: 25 mg, 2x/week
     Route: 058
     Dates: start: 201107
  2. METHOTREXATE [Concomitant]
     Dosage: 15 mg, weekly
  3. FOLIC ACID [Concomitant]
     Dosage: 5 mg, weekly
  4. GESTINOL [Concomitant]
     Dosage: UNK

REACTIONS (1)
  - Breast mass [Unknown]
